FAERS Safety Report 6119841-8 (Version None)
Quarter: 2009Q1

REPORT INFORMATION
  Report Type: 
  Country: None (occurrence: None)
  Receive Date: 20090316
  Receipt Date: 20090217
  Transmission Date: 20090719
  Serious: Yes (Other)
  Sender: FDA-Public Use
  Company Number: US-PFIZER INC-2009173370

PATIENT
  Sex: Female
  Weight: 52.608 kg

DRUGS (3)
  1. CHANTIX [Suspect]
     Indication: SMOKING CESSATION THERAPY
     Dates: start: 20090101
  2. OXYCODONE HCL [Concomitant]
  3. VICODIN [Concomitant]

REACTIONS (1)
  - PARANOIA [None]
